FAERS Safety Report 7662493-6 (Version None)
Quarter: 2011Q3

REPORT INFORMATION
  Report Type: 
  Country: None (occurrence: None)
  Receive Date: 20110805
  Receipt Date: 20101014
  Transmission Date: 20111222
  Serious: No
  Sender: FDA-Public Use
  Company Number: US-ABBOTT-10P-163-0678285-00

PATIENT
  Sex: Female
  Weight: 73.094 kg

DRUGS (5)
  1. VITAMINS AND MINERALS [Concomitant]
     Indication: PRODUCT USED FOR UNKNOWN INDICATION
  2. FOSAMAX [Concomitant]
     Indication: OSTEOPOROSIS
  3. NIASPAN [Suspect]
     Indication: LOW DENSITY LIPOPROTEIN INCREASED
     Dates: start: 20100909, end: 20100916
  4. NIASPAN [Suspect]
     Dates: start: 20100916
  5. LEVOTHYROXINE SODIUM [Concomitant]
     Indication: HYPOTHYROIDISM

REACTIONS (4)
  - BLOOD PRESSURE DECREASED [None]
  - HEADACHE [None]
  - HEART RATE DECREASED [None]
  - CHEST PAIN [None]
